FAERS Safety Report 5576614-2 (Version None)
Quarter: 2007Q4

REPORT INFORMATION
  Report Type: 
  Country: None (occurrence: None)
  Receive Date: 20071228
  Receipt Date: 20071220
  Transmission Date: 20080405
  Serious: Yes (Hospitalization)
  Sender: FDA-Public Use
  Company Number: US-KINGPHARMUSA00001-K200701565

PATIENT

DRUGS (2)
  1. EPIPEN [Suspect]
     Indication: ANAPHYLAXIS PROPHYLAXIS
     Dosage: UNK, SINGLE
     Route: 030
  2. EPIPEN [Suspect]
     Dosage: UNK, SINGLE

REACTIONS (2)
  - DRUG INEFFECTIVE [None]
  - LOSS OF CONSCIOUSNESS [None]
